FAERS Safety Report 23349443 (Version 1)
Quarter: 2023Q4

REPORT INFORMATION
  Report Type: Spontaneous
  Country: CN (occurrence: CN)
  Receive Date: 20231229
  Receipt Date: 20231229
  Transmission Date: 20240110
  Serious: Yes (Hospitalization, Other)
  Sender: FDA-Public Use
  Company Number: None

PATIENT
  Age: 64 Year
  Sex: Female
  Weight: 79 kg

DRUGS (4)
  1. CYCLOPHOSPHAMIDE [Suspect]
     Active Substance: CYCLOPHOSPHAMIDE
     Indication: Breast cancer female
     Dosage: 1G, ONE TIME IN ONE DAY, DILUTED WITH 250 ML OF SODIUM CHLORIDE, 21 DAYS FOR A CYCLE
     Route: 041
     Dates: start: 20230617, end: 20230617
  2. SODIUM CHLORIDE [Suspect]
     Active Substance: SODIUM CHLORIDE
     Indication: Medication dilution
     Dosage: (0.9%), 250 ML, ONE TIME IN ONE DAY, USED TO DILUTE 1 G OF CYCLOPHOSPHAMIDE,21 DAYS FOR A CYCLE
     Route: 041
     Dates: start: 20230617, end: 20230617
  3. SODIUM CHLORIDE [Suspect]
     Active Substance: SODIUM CHLORIDE
     Dosage: (0.9%), 250 ML, ONE TIME IN ONE DAY, USED TO DILUTE 120MG OF DOCETAXEL,21 DAYS FOR A CYCLE
     Route: 041
     Dates: start: 20230617, end: 20230617
  4. DOCETAXEL [Suspect]
     Active Substance: DOCETAXEL\DOCETAXEL ANHYDROUS
     Indication: Breast cancer female
     Dosage: 120 MG, ONE TIME IN ONE DAY, DILUTED WITH 250ML OF SODIUM CHLORIDE,21 DAYS FOR A CYCLE
     Route: 041
     Dates: start: 20230617, end: 20230617

REACTIONS (1)
  - Myelosuppression [Recovering/Resolving]

NARRATIVE: CASE EVENT DATE: 20230630
